FAERS Safety Report 5310107-2 (Version None)
Quarter: 2007Q2

REPORT INFORMATION
  Report Type: 
  Country: None (occurrence: None)
  Receive Date: 20070427
  Receipt Date: 20070419
  Transmission Date: 20071010
  Serious: Yes (Hospitalization)
  Sender: FDA-Public Use
  Company Number: US-MERCK-0607USA01888

PATIENT
  Age: 82 Year
  Sex: Female

DRUGS (1)
  1. FOSAMAX [Suspect]
     Indication: OSTEOPOROSIS
     Route: 048
     Dates: start: 20020709, end: 20060517

REACTIONS (9)
  - ANKLE FRACTURE [None]
  - ANXIETY [None]
  - ASPIRATION [None]
  - DENTAL CARIES [None]
  - DYSPNOEA [None]
  - GASTROOESOPHAGEAL REFLUX DISEASE [None]
  - JOINT CREPITATION [None]
  - PAIN IN JAW [None]
  - SINUSITIS [None]
